FAERS Safety Report 5390513-0 (Version None)
Quarter: 2007Q3

REPORT INFORMATION
  Report Type: 
  Country: None (occurrence: None)
  Receive Date: 20070718
  Receipt Date: 20060911
  Transmission Date: 20080115
  Serious: No
  Sender: FDA-Public Use
  Company Number: US-KINGPHARMUSA00001-K200601153

PATIENT

DRUGS (5)
  1. LEVOXYL [Suspect]
     Indication: HYPOTHYROIDISM
     Dosage: 62.5 MCG, QD
     Route: 048
     Dates: start: 20060706
  2. PREDNISONE [Concomitant]
     Dosage: 1 MG, UNK
     Route: 048
  3. CYTOMEL [Concomitant]
     Dosage: 5 MCG, UNK
     Route: 048
  4. DDAVP                                   /UNK/ [Concomitant]
     Dosage: .1 MG, UNK
  5. TAGAMET [Concomitant]
     Dosage: 200 MG, UNK
     Route: 048

REACTIONS (2)
  - DRUG INEFFECTIVE [None]
  - DRUG LEVEL BELOW THERAPEUTIC [None]
